FAERS Safety Report 10197409 (Version 1)
Quarter: 2014Q2

REPORT INFORMATION
  Report Type: Spontaneous
  Country: US (occurrence: US)
  Receive Date: 20140527
  Receipt Date: 20140527
  Transmission Date: 20141212
  Serious: Yes (Other)
  Sender: FDA-Public Use
  Company Number: US-PFIZER INC-2014141616

PATIENT
  Age: 50 Year
  Sex: Male
  Weight: 90.7 kg

DRUGS (4)
  1. LYRICA [Suspect]
     Indication: OSTEOARTHRITIS
     Dosage: UNK,2X/DAY
     Route: 048
     Dates: start: 201401, end: 20140511
  2. LYRICA [Suspect]
     Indication: CARPAL TUNNEL SYNDROME
  3. LYRICA [Suspect]
     Indication: PAIN
  4. CELEBREX [Suspect]
     Indication: OSTEOARTHRITIS
     Dosage: 200 MG, 1X/DAY
     Dates: start: 201401, end: 20140511

REACTIONS (7)
  - Rheumatoid arthritis [Unknown]
  - Impaired work ability [Not Recovered/Not Resolved]
  - Pain [Not Recovered/Not Resolved]
  - Osteoarthritis [Unknown]
  - Swelling [Unknown]
  - Fluid retention [Unknown]
  - Condition aggravated [Unknown]
